FAERS Safety Report 23610637 (Version 1)
Quarter: 2024Q1

REPORT INFORMATION
  Report Type: Spontaneous
  Country: DE (occurrence: DE)
  Receive Date: 20240308
  Receipt Date: 20240308
  Transmission Date: 20240410
  Serious: Yes (Death, Other)
  Sender: FDA-Public Use
  Company Number: None

PATIENT
  Age: 21 Year
  Sex: Male

DRUGS (9)
  1. LIDOCAINE HYDROCHLORIDE [Suspect]
     Active Substance: LIDOCAINE HYDROCHLORIDE
     Indication: Product used for unknown indication
     Dosage: UNK
     Route: 065
  2. PHENACETIN [Suspect]
     Active Substance: PHENACETIN
     Indication: Product used for unknown indication
     Dosage: UNK
     Route: 065
  3. THEOPHYLLINE [Suspect]
     Active Substance: THEOPHYLLINE
     Indication: Product used for unknown indication
     Dosage: UNK
     Route: 065
  4. THEOBROMINE [Suspect]
     Active Substance: THEOBROMINE
     Indication: Product used for unknown indication
     Dosage: UNK
     Route: 065
  5. CAFFEINE [Interacting]
     Active Substance: CAFFEINE
     Indication: Product used for unknown indication
     Dosage: DOSE DESCRIPTION : UNK UNK,UNK
     Route: 065
  6. COCAINE [Interacting]
     Active Substance: COCAINE
     Indication: Product used for unknown indication
     Dosage: DOSE DESCRIPTION : UNK UNK,UNK
     Route: 065
  7. HYDROXYZINE [Interacting]
     Active Substance: HYDROXYZINE HYDROCHLORIDE
     Indication: Product used for unknown indication
     Dosage: DOSE DESCRIPTION : UNK UNK,UNK
     Route: 065
  8. LEVAMISOLE [Interacting]
     Active Substance: LEVAMISOLE
     Indication: Product used for unknown indication
     Dosage: DOSE DESCRIPTION : UNK UNK,UNK
     Route: 065
  9. ACETAMINOPHEN [Interacting]
     Active Substance: ACETAMINOPHEN
     Indication: Product used for unknown indication
     Dosage: DOSE DESCRIPTION : UNK UNK,UNK
     Route: 065

REACTIONS (3)
  - Toxicity to various agents [Fatal]
  - Asphyxia [Fatal]
  - Accidental death [Fatal]
